FAERS Safety Report 26177959 (Version 1)
Quarter: 2025Q4

REPORT INFORMATION
  Report Type: Spontaneous
  Country: EU (occurrence: None)
  Receive Date: 20251219
  Receipt Date: 20251219
  Transmission Date: 20260118
  Serious: Yes (Other)
  Sender: AUROBINDO
  Company Number: EU-AFSSAPS-MA2025001658

PATIENT
  Age: 15 Month
  Sex: Male
  Weight: 10.8 kg

DRUGS (2)
  1. AMOXICILLIN [Suspect]
     Active Substance: AMOXICILLIN
     Indication: Product used for unknown indication
     Dosage: 3 GRAM, 1 TOTAL
     Route: 061
     Dates: start: 20251115, end: 20251115
  2. CLAVULANIC ACID [Suspect]
     Active Substance: CLAVULANIC ACID
     Indication: Product used for unknown indication
     Dosage: 375 MILLIGRAM, 1 TOTAL
     Route: 061
     Dates: start: 20251115, end: 20251115

REACTIONS (3)
  - Vomiting [Recovered/Resolved]
  - Accidental overdose [Recovered/Resolved]
  - Incorrect dose administered [Recovered/Resolved]

NARRATIVE: CASE EVENT DATE: 20251115
